FAERS Safety Report 12351366 (Version 4)
Quarter: 2018Q2

REPORT INFORMATION
  Report Type: Spontaneous
  Country: US (occurrence: US)
  Receive Date: 20160510
  Receipt Date: 20180409
  Transmission Date: 20180711
  Serious: Yes (Hospitalization, Other)
  Sender: FDA-Public Use
  Company Number: US-PFIZER INC-2016245891

PATIENT
  Age: 67 Year
  Sex: Male
  Weight: 77.11 kg

DRUGS (27)
  1. ATENOLOL. [Concomitant]
     Active Substance: ATENOLOL
     Indication: BLOOD PRESSURE MEASUREMENT
     Dosage: 50 MG, DAILY
     Dates: start: 200011
  2. CLONIDINE. [Concomitant]
     Active Substance: CLONIDINE
     Indication: HYPERTENSION
  3. NAPROXEN. [Concomitant]
     Active Substance: NAPROXEN
     Indication: ARTHRITIS
     Dosage: 500 MG, 2X/DAY
     Dates: start: 200011
  4. ASPIRIN. [Concomitant]
     Active Substance: ASPIRIN
     Dosage: 81 MG, UNK
  5. LYRICA [Suspect]
     Active Substance: PREGABALIN
     Indication: NEUROPATHY PERIPHERAL
     Dosage: 75 MG, 2X/DAY
     Dates: start: 201308
  6. LYRICA [Suspect]
     Active Substance: PREGABALIN
     Indication: BURNING SENSATION
     Dosage: 225 MG, 1X/DAY (AT NIGHT)
     Route: 048
  7. LOSARTAN. [Concomitant]
     Active Substance: LOSARTAN
     Indication: HYPERTENSION
  8. METFORMIN [Concomitant]
     Active Substance: METFORMIN HYDROCHLORIDE
     Indication: DIABETES MELLITUS
     Dosage: 1000 MG, 2X/DAY
     Dates: start: 200611
  9. METFORMIN [Concomitant]
     Active Substance: METFORMIN HYDROCHLORIDE
     Dosage: 2000 MG, DAILY (4 TABLET BY MOUTH A DAY)
     Route: 048
     Dates: end: 2017
  10. METOPROLOL TARTRATE. [Concomitant]
     Active Substance: METOPROLOL TARTRATE
     Indication: BLOOD PRESSURE MEASUREMENT
     Dosage: 50 MG, 2X/DAY
     Dates: start: 201603
  11. LYRICA [Suspect]
     Active Substance: PREGABALIN
     Indication: PAIN IN EXTREMITY
     Dosage: 300 MG, 1X/DAY (3 CAPSULES BY MOUTH AT BEDTIME)
     Route: 048
  12. GLYBURIDE. [Concomitant]
     Active Substance: GLYBURIDE
     Indication: DIABETES MELLITUS
     Dosage: 5 MG, 2X/DAY
     Dates: start: 199610
  13. ONE A DAY /07499601/ [Concomitant]
     Active Substance: MINERALS\VITAMINS
  14. CLONIDINE. [Concomitant]
     Active Substance: CLONIDINE
     Indication: BLOOD PRESSURE MEASUREMENT
     Dosage: 0.2 MG, 3X/DAY
     Dates: start: 199810
  15. ATORVASTATIN [Concomitant]
     Active Substance: ATORVASTATIN
     Indication: BLOOD CHOLESTEROL
     Dosage: 40 MG, DAILY
     Dates: start: 201603
  16. HYDRALAZINE [Concomitant]
     Active Substance: HYDRALAZINE HYDROCHLORIDE
     Indication: BLOOD PRESSURE MEASUREMENT
     Dosage: 100 MG, 3X/DAY
     Dates: start: 201603
  17. AMLOPINE [Concomitant]
     Active Substance: AMLODIPINE BESYLATE
     Indication: BLOOD PRESSURE MEASUREMENT
     Dosage: 10 MG, DAILY
     Dates: start: 201001
  18. COLACE [Concomitant]
     Active Substance: DOCUSATE SODIUM
     Dosage: 100 MG, UNK
  19. FISH OIL [Concomitant]
     Active Substance: FISH OIL
     Dosage: 1000 MG, UNK
  20. INSULIN [Concomitant]
     Active Substance: INSULIN NOS
     Indication: DIABETES MELLITUS
     Dosage: UNK
  21. GABAPENTIN. [Concomitant]
     Active Substance: GABAPENTIN
     Indication: NEUROPATHY PERIPHERAL
     Dosage: UNK
  22. LASIX [Concomitant]
     Active Substance: FUROSEMIDE
     Indication: OEDEMA
     Dosage: 40 MG, DAILY
     Dates: start: 201603
  23. NAPROXEN. [Concomitant]
     Active Substance: NAPROXEN
     Indication: RHEUMATOID ARTHRITIS
     Dosage: UNK UNK, AS NEEDED [500MG TABLET, 0.5 TABLET BY MOUTH TWICE A DAY]
     Route: 048
  24. POTASSIUM GLUCONATE [Concomitant]
     Active Substance: POTASSIUM GLUCONATE
     Dosage: 595 MG, UNK
  25. METOPROLOL TARTRATE. [Concomitant]
     Active Substance: METOPROLOL TARTRATE
     Indication: HYPERTENSION
  26. LOSARTAN. [Concomitant]
     Active Substance: LOSARTAN
     Indication: BLOOD PRESSURE MEASUREMENT
     Dosage: 100 MG, DAILY
     Dates: start: 201108
  27. HYDROCHLOROTHIAZIDE. [Concomitant]
     Active Substance: HYDROCHLOROTHIAZIDE
     Indication: DIURETIC THERAPY
     Dosage: UNK

REACTIONS (15)
  - Wound dehiscence [Not Recovered/Not Resolved]
  - Localised infection [Not Recovered/Not Resolved]
  - Pain [Not Recovered/Not Resolved]
  - Circulatory collapse [Unknown]
  - Dysuria [Unknown]
  - Skin ulcer [Not Recovered/Not Resolved]
  - Diabetic ulcer [Unknown]
  - Blindness [Not Recovered/Not Resolved]
  - Skin discolouration [Unknown]
  - Poor peripheral circulation [Not Recovered/Not Resolved]
  - Influenza [Unknown]
  - Staphylococcal infection [Not Recovered/Not Resolved]
  - Renal failure [Recovered/Resolved]
  - Thrombosis [Unknown]
  - Dyschezia [Recovered/Resolved]

NARRATIVE: CASE EVENT DATE: 20160318
